FAERS Safety Report 23537451 (Version 1)
Quarter: 2024Q1

REPORT INFORMATION
  Report Type: Report from Study
  Country: US (occurrence: US)
  Receive Date: 20240219
  Receipt Date: 20240219
  Transmission Date: 20240410
  Serious: No
  Sender: FDA-Public Use
  Company Number: US-AURINIA PHARMACEUTICALS INC.-AUR-004733

PATIENT
  Age: 61 Year
  Sex: Female

DRUGS (1)
  1. LUPKYNIS [Suspect]
     Active Substance: VOCLOSPORIN
     Indication: Product used for unknown indication
     Dosage: 23.7 MILLIGRAM, BID
     Route: 048
     Dates: start: 20231006

REACTIONS (7)
  - Blood creatinine increased [Unknown]
  - COVID-19 [Unknown]
  - Headache [Recovered/Resolved]
  - Tremor [Unknown]
  - Hypertension [Unknown]
  - Product packaging difficult to open [Unknown]
  - Product odour abnormal [Unknown]

NARRATIVE: CASE EVENT DATE: 20231222
